FAERS Safety Report 11093858 (Version 2)
Quarter: 2015Q2

REPORT INFORMATION
  Report Type: Spontaneous
  Country: US (occurrence: US)
  Receive Date: 20150506
  Receipt Date: 20150514
  Transmission Date: 20150821
  Serious: No
  Sender: FDA-Public Use
  Company Number: US-TEVA-560575ACC

PATIENT
  Age: 19 Year
  Sex: Female
  Weight: 56.3 kg

DRUGS (3)
  1. ZYRTEC [Concomitant]
     Active Substance: CETIRIZINE HYDROCHLORIDE
     Indication: SEASONAL ALLERGY
  2. CLARITIN [Concomitant]
     Active Substance: LORATADINE
     Indication: SEASONAL ALLERGY
  3. PLAN B ONE-STEP [Suspect]
     Active Substance: LEVONORGESTREL
     Indication: POST COITAL CONTRACEPTION
     Dosage: 1.5 MILLIGRAM DAILY;
     Route: 048
     Dates: start: 20150331, end: 20150331

REACTIONS (3)
  - Headache [Not Recovered/Not Resolved]
  - Metrorrhagia [Recovered/Resolved]
  - Menstruation irregular [Recovered/Resolved]

NARRATIVE: CASE EVENT DATE: 20150404
